FAERS Safety Report 19240956 (Version 2)
Quarter: 2021Q2

REPORT INFORMATION
  Report Type: Spontaneous
  Country: US (occurrence: US)
  Receive Date: 20210511
  Receipt Date: 20210624
  Transmission Date: 20210717
  Serious: Yes (Hospitalization, Other)
  Sender: FDA-Public Use
  Company Number: US-35507-2021-06495

PATIENT
  Age: 19 Year
  Sex: Female

DRUGS (26)
  1. DULOXETINE. [Suspect]
     Active Substance: DULOXETINE
     Indication: ATTENTION DEFICIT HYPERACTIVITY DISORDER
     Dosage: UNK
     Route: 065
  2. TRIKAFTA [Interacting]
     Active Substance: ELEXACAFTOR\IVACAFTOR\TEZACAFTOR
     Dosage: UNK (ONE AND A HALF TRIKAFTA TRIPLE THERAPY TABLETS WITH ONE AND A HALF TABLETS OF IVACAFTOR 150 MG
     Route: 065
  3. TRIKAFTA [Interacting]
     Active Substance: ELEXACAFTOR\IVACAFTOR\TEZACAFTOR
     Dosage: UNK (DOSE INCREASED TO FULL?DOSE)
     Route: 065
  4. TRIKAFTA [Interacting]
     Active Substance: ELEXACAFTOR\IVACAFTOR\TEZACAFTOR
     Dosage: UNK (TWO TRIPLE THERAPY TABLETS IN THE MORNING)
     Route: 065
     Dates: start: 202005
  5. IVACAFTOR [Suspect]
     Active Substance: IVACAFTOR
     Dosage: UNK (ONE IVACAFTOR 150MG TABLET IN THE MORNING)
     Route: 065
     Dates: start: 202003
  6. BUPROPION. [Concomitant]
     Active Substance: BUPROPION
     Indication: MAJOR DEPRESSION
     Dosage: 150 MILLIGRAM, QD, EXTENDED RELEASE
     Route: 065
  7. SERTRALINE [Interacting]
     Active Substance: SERTRALINE HYDROCHLORIDE
     Indication: ANTIDEPRESSANT THERAPY
     Dosage: 50 MILLIGRAM, QD (DOSE INCREASED)
     Route: 065
  8. IVACAFTOR [Suspect]
     Active Substance: IVACAFTOR
     Indication: CYSTIC FIBROSIS
     Dosage: UNK (STANDARD DOSE (TWO TRIPLE THERAPY TABLETS IN THE MORNING AND ONE IVACAFTOR 150?MG TABLET IN THE
     Route: 065
     Dates: start: 201911
  9. PIPERACILLIN/TAZOBACTAM [Concomitant]
     Active Substance: PIPERACILLIN SODIUM\TAZOBACTAM SODIUM
     Indication: PSEUDOMONAS INFECTION
     Dosage: UNK
     Route: 065
  10. CLONAZEPAM. [Concomitant]
     Active Substance: CLONAZEPAM
     Dosage: 0.5 MILLIGRAM, PRN (0.5MG 3 TIMES A DAY AS NEEDED)
     Route: 065
  11. MEROPENEM. [Concomitant]
     Active Substance: MEROPENEM
     Indication: PSEUDOMONAS INFECTION
     Dosage: UNK
     Route: 065
  12. DULOXETINE. [Suspect]
     Active Substance: DULOXETINE
     Indication: MAJOR DEPRESSION
  13. SERTRALINE [Interacting]
     Active Substance: SERTRALINE HYDROCHLORIDE
     Dosage: 75 MILLIGRAM, QD
     Route: 065
  14. TRIKAFTA [Interacting]
     Active Substance: ELEXACAFTOR\IVACAFTOR\TEZACAFTOR
     Indication: CYSTIC FIBROSIS
     Dosage: UNK (STANDARD DOSE (TWO TRIPLE THERAPY TABLETS IN THE MORNING AND ONE IVACAFTOR 150?MG TABLET IN THE
     Route: 065
     Dates: start: 201911, end: 201912
  15. TRIKAFTA [Interacting]
     Active Substance: ELEXACAFTOR\IVACAFTOR\TEZACAFTOR
     Dosage: UNK (DOSE INCREASED TO 2 TRIPLE THERAPY TABLETS IN THE MORNING)
     Route: 065
  16. IVACAFTOR [Suspect]
     Active Substance: IVACAFTOR
     Dosage: UNK (ONE AND A HALF IVACAFTOR 150MG TABLETS IN THE MORNING)
     Route: 065
  17. CEFTAZIDIME. [Concomitant]
     Active Substance: CEFTAZIDIME
     Indication: PSEUDOMONAS INFECTION
     Dosage: UNK
     Route: 065
  18. SERTRALINE [Interacting]
     Active Substance: SERTRALINE HYDROCHLORIDE
     Indication: MAJOR DEPRESSION
     Dosage: 12.5 MILLIGRAM, QD
     Route: 065
  19. TRIKAFTA [Interacting]
     Active Substance: ELEXACAFTOR\IVACAFTOR\TEZACAFTOR
     Dosage: UNK (RESTARTED AS ONE TRIPLE THERAPY TABLET WITH BREAKFAST)
     Route: 065
  20. TRIKAFTA [Interacting]
     Active Substance: ELEXACAFTOR\IVACAFTOR\TEZACAFTOR
     Dosage: UNK (TWO TRIPLE THERAPY TABLETS IN THE EVENING)
     Route: 065
     Dates: start: 202003
  21. QUETIAPINE. [Concomitant]
     Active Substance: QUETIAPINE
     Indication: INSOMNIA
     Dosage: 100 MILLIGRAM, QD (100 MG AT BEDTIME)
     Route: 065
  22. AZTREONAM. [Concomitant]
     Active Substance: AZTREONAM
     Indication: PSEUDOMONAS INFECTION
     Dosage: UNK
     Route: 065
  23. SERTRALINE [Interacting]
     Active Substance: SERTRALINE HYDROCHLORIDE
     Dosage: 150 MILLIGRAM, QD
     Route: 065
  24. TRIKAFTA [Interacting]
     Active Substance: ELEXACAFTOR\IVACAFTOR\TEZACAFTOR
     Dosage: UNK (DOSE INCREASED TO ONE AND A HALF TRIPLE THERAPY TABLETS WITH ONE AND A HALF IVACAFTOR 150?MG TA
     Route: 065
  25. QUETIAPINE. [Concomitant]
     Active Substance: QUETIAPINE
     Dosage: 75 MILLIGRAM, QD (75 MG AT BEDTIME)
     Route: 065
  26. CLONAZEPAM. [Concomitant]
     Active Substance: CLONAZEPAM
     Indication: MAJOR DEPRESSION
     Dosage: 0.5 MILLIGRAM, PRN (0.5MG TWICE A DAY AS NEEDED)
     Route: 065

REACTIONS (11)
  - Panic attack [Unknown]
  - Anxiety [Not Recovered/Not Resolved]
  - Sleep paralysis [Not Recovered/Not Resolved]
  - Drug interaction [Unknown]
  - Depressive symptom [Not Recovered/Not Resolved]
  - Depressed mood [Unknown]
  - Suicidal ideation [Unknown]
  - Affective disorder [Not Recovered/Not Resolved]
  - Emotional disorder [Unknown]
  - Increased appetite [Unknown]
  - Hypnopompic hallucination [Not Recovered/Not Resolved]
